FAERS Safety Report 23356278 (Version 1)
Quarter: 2024Q1

REPORT INFORMATION
  Report Type: Spontaneous
  Country: CN (occurrence: CN)
  Receive Date: 20240102
  Receipt Date: 20240102
  Transmission Date: 20240410
  Serious: Yes (Hospitalization)
  Sender: FDA-Public Use
  Company Number: None

PATIENT
  Age: 53 Year
  Sex: Female
  Weight: 54.5 kg

DRUGS (7)
  1. CYCLOPHOSPHAMIDE [Suspect]
     Active Substance: CYCLOPHOSPHAMIDE
     Indication: Breast cancer female
     Dosage: 0.9 G, ONCE, DILUTED WITH 50 ML OF 0.9 % SODIUM CHLORIDE, AS A PART OF FIRST CHEMOTHERAPY
     Route: 041
     Dates: start: 20231204, end: 20231204
  2. SODIUM CHLORIDE [Suspect]
     Active Substance: SODIUM CHLORIDE
     Indication: Medication dilution
     Dosage: 50 ML, ONCE, USED TO DILUTE 0.9 G OF CYCLOPHOSPHAMIDE, AS A PART OF FIRST CHEMOTHERAPY
     Route: 041
     Dates: start: 20231204, end: 20231204
  3. SODIUM CHLORIDE [Suspect]
     Active Substance: SODIUM CHLORIDE
     Dosage: 250 ML, ONCE, USED TO DILUTE 120 MG OF DOCETAXEL, AS A PART OF FIRST CHEMOTHERAPY
     Route: 041
     Dates: start: 20231204, end: 20231204
  4. DOCETAXEL [Suspect]
     Active Substance: DOCETAXEL\DOCETAXEL ANHYDROUS
     Indication: Breast cancer female
     Dosage: 120 MG, ONCE, DILUTED WITH 250 ML OF 0.9 % SODIUM CHLORIDE, AS A PART OF FIRST CHEMOTHERAPY
     Route: 041
     Dates: start: 20231204, end: 20231204
  5. TAMOXIFEN CITRATE [Suspect]
     Active Substance: TAMOXIFEN CITRATE
     Indication: Breast cancer female
     Dosage: 10 MG, TWICE A DAY
     Route: 048
     Dates: start: 20231118, end: 20231204
  6. GLUTATHIONE [Suspect]
     Active Substance: GLUTATHIONE
     Indication: Symptomatic treatment
     Dosage: UNK
     Route: 065
     Dates: start: 20231203
  7. MAGNESIUM ISOGLYCYRRHIZINATE [Suspect]
     Active Substance: MAGNESIUM ISOGLYCYRRHIZINATE
     Indication: Symptomatic treatment
     Dosage: UNK
     Route: 065
     Dates: start: 20231203

REACTIONS (2)
  - Hepatic function abnormal [Recovering/Resolving]
  - Hepatic enzyme increased [Recovering/Resolving]

NARRATIVE: CASE EVENT DATE: 20231221
